FAERS Safety Report 9153381 (Version 1)
Quarter: 2013Q1

REPORT INFORMATION
  Report Type: Spontaneous
  Country: DK (occurrence: None)
  Receive Date: 20130204
  Receipt Date: 20130204
  Transmission Date: 20140127
  Serious: Yes (Other)
  Sender: FDA-Public Use
  Company Number: 2013MA000777

PATIENT
  Age: 76 Year
  Sex: Female

DRUGS (3)
  1. PANTOPRAZOLE SODIUM DELAYED-RELEASE [Suspect]
     Indication: GASTROOESOPHAGEAL REFLUX DISEASE
     Route: 048
     Dates: start: 20100102, end: 20130107
  2. COUMADIN [Suspect]
     Indication: PULMONARY EMBOLISM
     Dates: start: 20121228, end: 20130117
  3. BISOPROLOL [Concomitant]

REACTIONS (3)
  - International normalised ratio increased [None]
  - Drug interaction [None]
  - Drug ineffective [None]
